FAERS Safety Report 7109427-0 (Version None)
Quarter: 2010Q4

REPORT INFORMATION
  Report Type: 
  Country: None (occurrence: None)
  Receive Date: 20101118
  Receipt Date: 20101108
  Transmission Date: 20110411
  Serious: No
  Sender: FDA-Public Use
  Company Number: US-BIOGENIDEC-2010BI037310

PATIENT
  Sex: Female

DRUGS (1)
  1. TYSABRI [Suspect]
     Indication: MULTIPLE SCLEROSIS
     Route: 042
     Dates: start: 20100203

REACTIONS (11)
  - AMNESIA [None]
  - CONSTIPATION [None]
  - CRYING [None]
  - DIARRHOEA [None]
  - DIPLOPIA [None]
  - FALL [None]
  - HEAD INJURY [None]
  - LOSS OF CONTROL OF LEGS [None]
  - PAIN IN EXTREMITY [None]
  - SOMNOLENCE [None]
  - STRESS [None]
